FAERS Safety Report 6567452-2 (Version None)
Quarter: 2010Q2

REPORT INFORMATION
  Report Type: 
  Country: None (occurrence: None)
  Receive Date: 20100127
  Receipt Date: 20100112
  Transmission Date: 20101027
  Serious: Yes (Other)
  Sender: FDA-Public Use
  Company Number: US-001363

PATIENT
  Sex: Male

DRUGS (1)
  1. TEV-TROPIN [Suspect]
     Indication: DRUG USE FOR UNKNOWN INDICATION

REACTIONS (2)
  - MELANOCYTIC NAEVUS [None]
  - PRECANCEROUS SKIN LESION [None]
